FAERS Safety Report 22049512 (Version 3)
Quarter: 2023Q2

REPORT INFORMATION
  Report Type: Spontaneous
  Country: US (occurrence: US)
  Receive Date: 20230301
  Receipt Date: 20230629
  Transmission Date: 20230722
  Serious: No
  Sender: FDA-Public Use
  Company Number: US-BAYER-2023A018131

PATIENT
  Age: 39 Year
  Sex: Female

DRUGS (5)
  1. MIRALAX [Suspect]
     Active Substance: POLYETHYLENE GLYCOL 3350
     Indication: Constipation
     Dosage: IMATELY 3 DAYS A WEEK
     Route: 048
     Dates: start: 2022
  2. COLLAGEN [Concomitant]
     Active Substance: COLLAGEN
  3. CALCIUM [Concomitant]
     Active Substance: CALCIUM
  4. IRON [Concomitant]
     Active Substance: IRON
  5. ASCORBIC ACID [Concomitant]
     Active Substance: ASCORBIC ACID

REACTIONS (5)
  - Anal incontinence [Unknown]
  - Flatulence [Unknown]
  - Diarrhoea [Unknown]
  - Suspected counterfeit product [None]
  - Product taste abnormal [None]
